FAERS Safety Report 8832464 (Version 1)
Quarter: 2012Q4

REPORT INFORMATION
  Report Type: Spontaneous
  Country: US (occurrence: None)
  Receive Date: 20121005
  Receipt Date: 20121005
  Transmission Date: 20130627
  Serious: Yes (Hospitalization)
  Sender: FDA-Public Use
  Company Number: None

PATIENT
  Age: 54 Year
  Sex: Male
  Weight: 97.7 kg

DRUGS (2)
  1. SULFASALAZINE [Suspect]
     Indication: RHEUMATOID ARTHRITIS
     Route: 048
     Dates: start: 20120712, end: 20120907
  2. HYDROXYCHLOROQUINE [Suspect]
     Route: 048
     Dates: start: 20120201, end: 20120907

REACTIONS (4)
  - Agranulocytosis [None]
  - Infection [None]
  - Thrombocytopenia [None]
  - Neutropenia [None]
